FAERS Safety Report 9474706 (Version 3)
Quarter: 2019Q2

REPORT INFORMATION
  Report Type: Spontaneous
  Country: CM (occurrence: CM)
  Receive Date: 20130823
  Receipt Date: 20190531
  Transmission Date: 20190711
  Serious: Yes (Hospitalization, Other)
  Sender: FDA-Public Use
  Company Number: CM-009507513-1308CMR009475

PATIENT
  Age: 30 Year
  Sex: Female
  Weight: 48 kg

DRUGS (5)
  1. ALBENDAZOLE. [Suspect]
     Active Substance: ALBENDAZOLE
     Indication: ONCHOCERCIASIS
  2. MECTIZAN [Suspect]
     Active Substance: IVERMECTIN
     Indication: ONCHOCERCIASIS
  3. MECTIZAN [Suspect]
     Active Substance: IVERMECTIN
     Indication: FILARIASIS LYMPHATIC
     Dosage: 3 TABLETS, UNK
     Route: 048
     Dates: start: 20130714
  4. DI-HYDAN [Concomitant]
     Active Substance: PHENYTOIN
     Dosage: UNKNOWN
  5. ALBENDAZOLE. [Suspect]
     Active Substance: ALBENDAZOLE
     Indication: FILARIASIS LYMPHATIC
     Dosage: 1 TABLET, UNK
     Route: 048
     Dates: start: 20130714

REACTIONS (9)
  - Tongue ulceration [Not Recovered/Not Resolved]
  - Generalised oedema [Recovering/Resolving]
  - Toxic epidermal necrolysis [Not Recovered/Not Resolved]
  - Lip ulceration [Not Recovered/Not Resolved]
  - Pyrexia [Recovering/Resolving]
  - Asthenia [Recovering/Resolving]
  - Skin ulcer [Not Recovered/Not Resolved]
  - Decreased appetite [Recovering/Resolving]
  - Pruritus [Recovering/Resolving]

NARRATIVE: CASE EVENT DATE: 20130714
